FAERS Safety Report 6055013-3 (Version None)
Quarter: 2009Q1

REPORT INFORMATION
  Report Type: 
  Country: None (occurrence: None)
  Receive Date: 20090122
  Receipt Date: 20090113
  Transmission Date: 20090719
  Serious: Yes (Life-Threatening, Hospitalization)
  Sender: FDA-Public Use
  Company Number: GXKR2009DE00629

PATIENT
  Age: 80 Year
  Sex: Female
  Weight: 91 kg

DRUGS (13)
  1. CARVEDILOL [Suspect]
     Indication: HYPERTENSION
     Dosage: 12.5 MG, BID, ORAL
     Route: 048
  2. ENALAPRIL MALEATE [Suspect]
     Indication: HYPERTENSION
     Dosage: 10 MG, BID, ORAL
     Route: 048
  3. ACTRAPID PENFILL (INSULIN HUMAN) SOLUTION FOR INJECTION [Suspect]
     Indication: TYPE 2 DIABETES MELLITUS
     Dosage: 30-18-16 IU, SUBCUTANEOUS
     Route: 058
     Dates: start: 20080219
  4. LANTUS [Suspect]
     Indication: TYPE 2 DIABETES MELLITUS
     Dosage: 36 IU, QD, SUBCUTANEOUS
     Route: 058
     Dates: start: 20080219
  5. ACETYLSALICYLIC ACID SRT [Concomitant]
  6. CALCIMAGON (CALCIUM CARBONATE) [Concomitant]
  7. L-THYROXINE (LEVOTHYROXINE) [Concomitant]
  8. OMEPRAZOLE [Concomitant]
  9. PARACODIN /GFR/ (DIHYDROCODEINE BITARTRATE) [Concomitant]
  10. PREDNISOLON (PREDNISOLNE) [Concomitant]
  11. RISPERIDONE [Concomitant]
  12. SALBUTAMOL (SALBUTAMOL) [Concomitant]
  13. TORSEMIDE [Concomitant]

REACTIONS (1)
  - HYPOGLYCAEMIA [None]
